FAERS Safety Report 16914692 (Version 1)
Quarter: 2019Q4

REPORT INFORMATION
  Report Type: Report from Study
  Country: PL (occurrence: PL)
  Receive Date: 20191014
  Receipt Date: 20191014
  Transmission Date: 20200122
  Serious: Yes (Hospitalization, Other)
  Sender: FDA-Public Use
  Company Number: PL-HRAPH01-201800957

PATIENT
  Age: 36 Year
  Sex: Female
  Weight: 84 kg

DRUGS (15)
  1. METYRAPONE [Suspect]
     Active Substance: METYRAPONE
     Indication: PITUITARY-DEPENDENT CUSHING^S SYNDROME
     Route: 048
     Dates: start: 20180321, end: 20180327
  2. CHOLECALCIFEROL [Concomitant]
     Active Substance: CHOLECALCIFEROL
     Indication: PRODUCT USED FOR UNKNOWN INDICATION
     Dosage: 2000 J.
     Route: 048
     Dates: start: 20150910
  3. METYRAPONE [Suspect]
     Active Substance: METYRAPONE
     Indication: PITUITARY-DEPENDENT CUSHING^S SYNDROME
     Route: 048
     Dates: start: 20180328, end: 20180410
  4. METYRAPONE [Suspect]
     Active Substance: METYRAPONE
     Indication: PITUITARY-DEPENDENT CUSHING^S SYNDROME
     Route: 048
     Dates: start: 20180307, end: 20180320
  5. METYRAPONE [Suspect]
     Active Substance: METYRAPONE
     Indication: PITUITARY-DEPENDENT CUSHING^S SYNDROME
     Route: 048
     Dates: start: 20180411, end: 20180422
  6. METYRAPONE [Suspect]
     Active Substance: METYRAPONE
     Indication: PITUITARY-DEPENDENT CUSHING^S SYNDROME
     Route: 048
     Dates: start: 20180423, end: 20180728
  7. METYRAPONE [Suspect]
     Active Substance: METYRAPONE
     Indication: PITUITARY-DEPENDENT CUSHING^S SYNDROME
     Route: 048
     Dates: start: 20181022, end: 20181022
  8. VALSARTAN. [Concomitant]
     Active Substance: VALSARTAN
     Indication: HYPERTENSION
     Route: 048
     Dates: start: 201409
  9. METYRAPONE [Suspect]
     Active Substance: METYRAPONE
     Indication: PITUITARY-DEPENDENT CUSHING^S SYNDROME
     Route: 048
     Dates: start: 20180814, end: 20181021
  10. METFORMIN [Concomitant]
     Active Substance: METFORMIN HYDROCHLORIDE
     Indication: INSULIN RESISTANCE
     Route: 048
     Dates: start: 20150401
  11. INDAPAMID SR [Concomitant]
     Active Substance: INDAPAMIDE
     Indication: HYPERTENSION
     Route: 048
     Dates: start: 201409
  12. DAYLETTE [Concomitant]
     Active Substance: DROSPIRENONE\ETHINYL ESTRADIOL
     Indication: PRODUCT USED FOR UNKNOWN INDICATION
     Dosage: 0.02 MG+3 MG
     Route: 048
     Dates: start: 20180203, end: 20181022
  13. METYRAPONE [Suspect]
     Active Substance: METYRAPONE
     Indication: PITUITARY-DEPENDENT CUSHING^S SYNDROME
     Route: 048
     Dates: start: 20180729, end: 20180812
  14. CALCIUM [Concomitant]
     Active Substance: CALCIUM
     Indication: PRODUCT USED FOR UNKNOWN INDICATION
     Route: 048
     Dates: start: 20150910
  15. METYRAPONE [Suspect]
     Active Substance: METYRAPONE
     Indication: PITUITARY-DEPENDENT CUSHING^S SYNDROME
     Route: 048
     Dates: start: 20180813, end: 20180813

REACTIONS (1)
  - Angle closure glaucoma [Recovered/Resolved]

NARRATIVE: CASE EVENT DATE: 20181022
